FAERS Safety Report 9062345 (Version 1)
Quarter: 2013Q1

REPORT INFORMATION
  Report Type: Spontaneous
  Country: CA (occurrence: CA)
  Receive Date: 20130213
  Receipt Date: 20130213
  Transmission Date: 20140127
  Serious: Yes (Other)
  Sender: FDA-Public Use
  Company Number: CA-GLAXOSMITHKLINE-A1011300A

PATIENT
  Age: 58 None
  Sex: Male

DRUGS (1)
  1. VOTRIENT [Suspect]
     Indication: RENAL CANCER METASTATIC
     Dosage: 800MG PER DAY
     Route: 048
     Dates: start: 20120814

REACTIONS (3)
  - Cerebrovascular accident [Recovered/Resolved]
  - Fall [Recovered/Resolved]
  - Immobile [Recovered/Resolved]
